FAERS Safety Report 4622554-2 (Version None)
Quarter: 2005Q1

REPORT INFORMATION
  Report Type: 
  Country: None (occurrence: None)
  Receive Date: 20050317
  Receipt Date: 20040714
  Transmission Date: 20050727
  Serious: Yes (Life-Threatening, Hospitalization)
  Sender: FDA-Public Use
  Company Number: PHEH2004US07672

PATIENT
  Sex: Female

DRUGS (1)
  1. TRILEPTAL [Suspect]
     Indication: NEUROPATHIC PAIN
     Dosage: 300 MG, BID, ORAL
     Route: 048

REACTIONS (3)
  - FATIGUE [None]
  - HYPONATRAEMIA [None]
  - SYNCOPE [None]
